FAERS Safety Report 5376820-6 (Version None)
Quarter: 2007Q3

REPORT INFORMATION
  Report Type: 
  Country: None (occurrence: None)
  Receive Date: 20070703
  Receipt Date: 20070625
  Transmission Date: 20080115
  Serious: Yes (Hospitalization, Other)
  Sender: FDA-Public Use
  Company Number: PHFR2007GB01987

PATIENT
  Age: 31 Year
  Sex: Male

DRUGS (8)
  1. CLOZAPINE [Suspect]
     Indication: SCHIZOPHRENIA
     Dosage: 450MG/DAY
     Route: 048
     Dates: start: 20020523
  2. CLOZAPINE [Suspect]
     Dosage: 300MG/DAY
     Route: 048
     Dates: end: 20070319
  3. PIRENZEPINE [Concomitant]
     Indication: SALIVARY HYPERSECRETION
  4. AMISULPRIDE [Concomitant]
  5. FLUPENTIXOL [Concomitant]
  6. HALDOL [Concomitant]
  7. OLANZAPINE [Concomitant]
  8. ALCOHOL [Suspect]

REACTIONS (8)
  - ALANINE AMINOTRANSFERASE [None]
  - ASPARTATE AMINOTRANSFERASE INCREASED [None]
  - BLOOD ALKALINE PHOSPHATASE INCREASED [None]
  - CHOLESTASIS [None]
  - GAMMA-GLUTAMYLTRANSFERASE INCREASED [None]
  - HEPATIC STEATOSIS [None]
  - LIVER FUNCTION TEST ABNORMAL [None]
  - SPLENOMEGALY [None]
